FAERS Safety Report 19355022 (Version 1)
Quarter: 2021Q2

REPORT INFORMATION
  Report Type: Spontaneous
  Country: IE (occurrence: IE)
  Receive Date: 20210531
  Receipt Date: 20210531
  Transmission Date: 20210717
  Serious: Yes (Hospitalization)
  Sender: FDA-Public Use
  Company Number: IE-LUPIN PHARMACEUTICALS INC.-2021-08179

PATIENT
  Age: 13 Year
  Sex: Female

DRUGS (10)
  1. LORAZEPAM. [Suspect]
     Active Substance: LORAZEPAM
     Dosage: 3 MILLIGRAM, TID
     Route: 030
  2. LORAZEPAM. [Suspect]
     Active Substance: LORAZEPAM
     Dosage: 3.5 MILLIGRAM, TID
     Route: 030
  3. LORAZEPAM. [Suspect]
     Active Substance: LORAZEPAM
     Dosage: 4 MILLIGRAM, TID
     Route: 030
  4. LORAZEPAM. [Suspect]
     Active Substance: LORAZEPAM
     Dosage: 1 MILLIGRAM, TID
     Route: 030
  5. LORAZEPAM. [Suspect]
     Active Substance: LORAZEPAM
     Indication: CATATONIA
     Dosage: 0.5 MILLIGRAM, TID
     Route: 030
  6. LORAZEPAM. [Suspect]
     Active Substance: LORAZEPAM
     Dosage: 1.5 MILLIGRAM, TID
     Route: 030
  7. CEFTRIAXONE. [Concomitant]
     Active Substance: CEFTRIAXONE
     Indication: TONSILLITIS
     Dosage: UNK
     Route: 065
  8. LORAZEPAM. [Suspect]
     Active Substance: LORAZEPAM
     Dosage: 2 MILLIGRAM, TID
     Route: 030
  9. LORAZEPAM. [Suspect]
     Active Substance: LORAZEPAM
     Dosage: 2 MILLIGRAM, TID
     Route: 030
  10. LORAZEPAM. [Suspect]
     Active Substance: LORAZEPAM
     Dosage: 2.5 MILLIGRAM, TID
     Route: 030

REACTIONS (2)
  - Unmasking of previously unidentified disease [Recovering/Resolving]
  - Affective disorder [Recovering/Resolving]
